FAERS Safety Report 13966570 (Version 1)
Quarter: 2017Q3

REPORT INFORMATION
  Report Type: Other
  Country: GB (occurrence: GB)
  Receive Date: 20170913
  Receipt Date: 20170913
  Transmission Date: 20171128
  Serious: Yes (Other)
  Sender: FDA-Public Use
  Company Number: GB-MACLEODS PHARMACEUTICALS US LTD-MAC2017005818

PATIENT

DRUGS (2)
  1. ARIPIPRAZOLE  10 MG [Suspect]
     Active Substance: ARIPIPRAZOLE
     Dosage: 20 MG, UNK (DURING FIRST LAST 3 MONTHS OF PREGNANCY)
     Route: 065
     Dates: start: 2012
  2. ARIPIPRAZOLE  10 MG [Suspect]
     Active Substance: ARIPIPRAZOLE
     Indication: SCHIZOAFFECTIVE DISORDER
     Dosage: 10 MG, UNK (DURING FIRST SIX MONTH OF PREGNANCY)
     Route: 065
     Dates: start: 2012

REACTIONS (3)
  - Hypersexuality [Unknown]
  - Exposure during pregnancy [Unknown]
  - Thrombosis [Unknown]
